FAERS Safety Report 8131010-9 (Version None)
Quarter: 2012Q1

REPORT INFORMATION
  Report Type: 
  Country: None (occurrence: None)
  Receive Date: 20120208
  Receipt Date: 20120208
  Transmission Date: 20120608
  Serious: Yes (Hospitalization)
  Sender: FDA-Public Use
  Company Number: None

PATIENT
  Age: 63 Year
  Sex: Male
  Weight: 61 kg

DRUGS (1)
  1. WARFARIN SODIUM [Suspect]
     Dates: start: 20081107, end: 20110509

REACTIONS (3)
  - HAEMATEMESIS [None]
  - HAEMOGLOBIN DECREASED [None]
  - HAEMORRHAGE [None]
